FAERS Safety Report 7618210-9 (Version None)
Quarter: 2011Q3

REPORT INFORMATION
  Report Type: 
  Country: None (occurrence: None)
  Receive Date: 20110718
  Receipt Date: 20110711
  Transmission Date: 20111222
  Serious: Yes (Death, Hospitalization)
  Sender: FDA-Public Use
  Company Number: US-GLAXOSMITHKLINE-A0936298A

PATIENT
  Age: 87 Year
  Sex: Female

DRUGS (8)
  1. ISOSORBIDE DINITRATE [Concomitant]
  2. COREG CR [Suspect]
     Indication: CARDIAC FAILURE CONGESTIVE
     Dosage: 20MG PER DAY
     Route: 048
  3. POTASSIUM [Concomitant]
  4. UNKNOWN MEDICATION [Concomitant]
  5. LIPITOR [Concomitant]
  6. ZYPREXA [Concomitant]
  7. ACIPHEX [Concomitant]
  8. FUROSEMIDE [Concomitant]

REACTIONS (4)
  - PNEUMONIA [None]
  - DYSPHAGIA [None]
  - ASPIRATION [None]
  - DEATH [None]
